FAERS Safety Report 8597298-5 (Version None)
Quarter: 2012Q3

REPORT INFORMATION
  Report Type: 
  Country: None (occurrence: None)
  Receive Date: 20120816
  Receipt Date: 20120814
  Transmission Date: 20120928
  Serious: Yes (Other)
  Sender: FDA-Public Use
  Company Number: US-AMGEN-USASP2012051395

PATIENT
  Age: 69 Year
  Sex: Male

DRUGS (2)
  1. AMIODARONE [Concomitant]
     Dosage: UNK
  2. ENBREL [Suspect]
     Indication: RHEUMATOID ARTHRITIS
     Dosage: 25 MG, 2 TIMES/WK
     Dates: start: 19990101

REACTIONS (5)
  - ATRIAL FIBRILLATION [None]
  - CORNEAL PIGMENTATION [None]
  - OROPHARYNGEAL PAIN [None]
  - HAEMORRHOIDS [None]
  - GINGIVAL RECESSION [None]
